FAERS Safety Report 11291895 (Version 2)
Quarter: 2015Q3

REPORT INFORMATION
  Report Type: Spontaneous
  Country: US (occurrence: US)
  Receive Date: 20150722
  Receipt Date: 20150901
  Transmission Date: 20151125
  Serious: Yes (Other)
  Sender: FDA-Public Use
  Company Number: US-NOVOPROD-457119

PATIENT
  Age: 53 Year
  Sex: Male
  Weight: 91.61 kg

DRUGS (3)
  1. LEVEMIR [Suspect]
     Active Substance: INSULIN DETEMIR
     Indication: TYPE 2 DIABETES MELLITUS
     Dosage: 100 U/ML, 15 U, QD AT NIGHT
     Route: 058
     Dates: start: 20131219, end: 201507
  2. LEVEMIR [Suspect]
     Active Substance: INSULIN DETEMIR
     Dosage: 100 U/ML, 15 U, QD AT NIGHT
     Route: 058
     Dates: start: 20150709
  3. NOVOLIN N [Suspect]
     Active Substance: INSULIN HUMAN
     Indication: TYPE 2 DIABETES MELLITUS
     Dosage: 8 U, BID
     Route: 058
     Dates: start: 20131226, end: 20150709

REACTIONS (5)
  - Dehydration [Recovered/Resolved]
  - Blood glucose increased [Recovered/Resolved]
  - Glycosylated haemoglobin increased [Unknown]
  - Blood glucose increased [Unknown]
  - Wrong drug administered [Recovered/Resolved]

NARRATIVE: CASE EVENT DATE: 20150513
